FAERS Safety Report 4875661-3 (Version None)
Quarter: 2006Q1

REPORT INFORMATION
  Report Type: 
  Country: None (occurrence: None)
  Receive Date: 20060105
  Receipt Date: 20051228
  Transmission Date: 20060701
  Serious: Yes (Hospitalization)
  Sender: FDA-Public Use
  Company Number: 2005-12-1069

PATIENT
  Age: 63 Year
  Sex: Female

DRUGS (4)
  1. CELESTONE [Suspect]
     Indication: DERMATOMYOSITIS
     Dosage: 2 MG BID ORAL
     Route: 048
     Dates: start: 20051102, end: 20051105
  2. CORTANCYL TABLETS [Suspect]
     Dosage: 60 MG QD ORAL
     Route: 048
     Dates: start: 20051111, end: 20051113
  3. FLUDEX [Concomitant]
  4. ZOFENOPRIL [Concomitant]

REACTIONS (7)
  - ERYTHEMA [None]
  - INFLAMMATION [None]
  - INTESTINAL PERFORATION [None]
  - PAIN [None]
  - PNEUMOPERITONEUM [None]
  - PRURITUS [None]
  - SIGMOIDITIS [None]
